FAERS Safety Report 4933574-2 (Version None)
Quarter: 2006Q1

REPORT INFORMATION
  Report Type: 
  Country: None (occurrence: None)
  Receive Date: 20060117
  Receipt Date: 20051205
  Transmission Date: 20060701
  Serious: Yes (Other)
  Sender: FDA-Public Use
  Company Number: 2005049946

PATIENT
  Age: 88 Year
  Sex: Male
  Weight: 72.5755 kg

DRUGS (7)
  1. MACUGEN [Suspect]
     Indication: VISUAL ACUITY REDUCED
     Dosage: (1 IN 6 WK), INTRAOCULAR
     Route: 031
     Dates: start: 20050304
  2. DEPAKOTE - SLOW RELEASE (VALPROATE SEMISODIUM) [Concomitant]
  3. ASPIRINA INFANTIL (ACETYLSALICYLIC ACID) [Concomitant]
  4. VITAMINS (VITAMINS) [Concomitant]
  5. MULTIVITAMIN [Concomitant]
  6. GLUCOSAMINE (GLUCOSAMINE) [Concomitant]
  7. CORTICOSTEROID NOS (CORTICOSTEROID NOS) [Concomitant]

REACTIONS (4)
  - DRUG INEFFECTIVE [None]
  - LENTICULAR OPACITIES [None]
  - VISION BLURRED [None]
  - VISUAL ACUITY REDUCED [None]
